FAERS Safety Report 11080141 (Version 2)
Quarter: 2015Q2

REPORT INFORMATION
  Report Type: Spontaneous
  Country: JP (occurrence: JP)
  Receive Date: 20150430
  Receipt Date: 20150616
  Transmission Date: 20150821
  Serious: Yes (Other)
  Sender: FDA-Public Use
  Company Number: JP-MYLANLABS-2015M1012974

PATIENT
  Age: 80 Year
  Sex: Female

DRUGS (3)
  1. ATROPINE NITTEN [Suspect]
     Active Substance: ATROPINE SULFATE
     Indication: UVEITIS
     Dosage: UNK, QD
     Route: 031
  2. BETAMETHASONE SODIUM PHOSPHATE [Suspect]
     Active Substance: BETAMETHASONE SODIUM PHOSPHATE
     Indication: UVEITIS
     Dosage: UNK, QID
     Route: 031
  3. LEVOFLOXACIN. [Suspect]
     Active Substance: LEVOFLOXACIN
     Indication: UVEITIS
     Dosage: UNK, QID
     Route: 031

REACTIONS (2)
  - Herpes virus infection [Recovering/Resolving]
  - Viral uveitis [Recovering/Resolving]
